FAERS Safety Report 8355799-9 (Version None)
Quarter: 2012Q2

REPORT INFORMATION
  Report Type: 
  Country: None (occurrence: None)
  Receive Date: 20120514
  Receipt Date: 20120508
  Transmission Date: 20120825
  Serious: No
  Sender: FDA-Public Use
  Company Number: US-PFIZER INC-2012113301

PATIENT
  Sex: Female
  Weight: 83.9 kg

DRUGS (3)
  1. IBUPROFEN (ADVIL) [Suspect]
     Indication: ARTHRALGIA
     Dosage: UNK
     Dates: start: 20120401, end: 20120101
  2. JANUVIA [Concomitant]
     Indication: DIABETES MELLITUS
     Dosage: 25 MG, DAILY
  3. NAPROXEN (ALEVE) [Suspect]
     Indication: ARTHRALGIA
     Dosage: UNK

REACTIONS (2)
  - NAUSEA [None]
  - DRUG INEFFECTIVE [None]
